FAERS Safety Report 5271692-2 (Version None)
Quarter: 2007Q1

REPORT INFORMATION
  Report Type: 
  Country: None (occurrence: None)
  Receive Date: 20070321
  Receipt Date: 20070309
  Transmission Date: 20070707
  Serious: Yes (Other)
  Sender: FDA-Public Use
  Company Number: US-PFIZER INC-2007018790

PATIENT
  Sex: Female
  Weight: 77.1 kg

DRUGS (4)
  1. LIPITOR [Suspect]
     Indication: BLOOD CHOLESTEROL INCREASED
  2. LYRICA [Suspect]
     Indication: NEUROPATHY PERIPHERAL
  3. INSULIN [Concomitant]
     Indication: DIABETES MELLITUS
  4. PREVACID [Concomitant]
     Indication: GASTROOESOPHAGEAL REFLUX DISEASE

REACTIONS (3)
  - EYE OPERATION [None]
  - MYALGIA [None]
  - VISION BLURRED [None]
